FAERS Safety Report 5649733-X (Version None)
Quarter: 2008Q1

REPORT INFORMATION
  Report Type: 
  Country: None (occurrence: None)
  Receive Date: 20080304
  Receipt Date: 20080225
  Transmission Date: 20080703
  Serious: Yes (Other)
  Sender: FDA-Public Use
  Company Number: US-BOEHRINGER INGELHEIM GMBH, GERMANY-2008-DE-01214GD

PATIENT
  Sex: Female

DRUGS (11)
  1. MORPHINE [Suspect]
     Indication: BACK PAIN
  2. MORPHINE [Suspect]
     Indication: PAIN IN EXTREMITY
     Dosage: 0.5 ML/HR (0.4 MG/ML) WITH EXTRA BOLUS OF 0.2 ML (60-MIN LOCKOUT INTERVAL); INCREASED TO 1 ML/HR DUR
     Route: 008
  3. MORPHINE [Suspect]
     Route: 037
  4. MELOXICAM [Suspect]
     Indication: BACK PAIN
  5. MELOXICAM [Suspect]
     Indication: PAIN IN EXTREMITY
  6. ACETAMINOPHEN AND OXYCODONE HCL [Suspect]
     Indication: BACK PAIN
     Dosage: 30/975 OXYCODONE/ACETAMINOPHEN (AS NEEDED)
  7. ACETAMINOPHEN AND OXYCODONE HCL [Suspect]
     Indication: PAIN IN EXTREMITY
  8. GABAPENTIN [Suspect]
     Indication: BACK PAIN
  9. GABAPENTIN [Suspect]
     Indication: PAIN IN EXTREMITY
  10. TIZANIDINE HCL [Suspect]
     Indication: BACK PAIN
  11. TIZANIDINE HCL [Suspect]
     Indication: PAIN IN EXTREMITY

REACTIONS (3)
  - DRUG INEFFECTIVE [None]
  - HICCUPS [None]
  - PRURITUS [None]
